FAERS Safety Report 5608054-1 (Version None)
Quarter: 2008Q1

REPORT INFORMATION
  Report Type: 
  Country: None (occurrence: None)
  Receive Date: 20080128
  Receipt Date: 20080128
  Transmission Date: 20080703
  Serious: No
  Sender: FDA-Public Use
  Company Number: None

PATIENT
  Age: 59 Year
  Sex: Male

DRUGS (8)
  1. LIPITOR [Suspect]
     Indication: ARTERIOSCLEROSIS
     Dates: start: 20071201, end: 20080101
  2. LIPITOR [Suspect]
     Indication: BIPOLAR DISORDER
     Dates: start: 20071201, end: 20080101
  3. LAMICTAL [Concomitant]
  4. SERZONE [Concomitant]
  5. AMILORIDE HYDROCHLORIDE [Concomitant]
  6. DEPAKOTE [Concomitant]
  7. CLONAZEPAM [Concomitant]
  8. LITHIUM CARBONATE [Concomitant]

REACTIONS (2)
  - DEPRESSION [None]
  - SUICIDAL IDEATION [None]
